FAERS Safety Report 9782402 (Version 2)
Quarter: 2014Q1

REPORT INFORMATION
  Report Type: Spontaneous
  Country: FR (occurrence: FR)
  Receive Date: 20131226
  Receipt Date: 20140102
  Transmission Date: 20141002
  Serious: Yes (Hospitalization)
  Sender: FDA-Public Use
  Company Number: PHHY2013FR150211

PATIENT
  Age: 69 Year
  Sex: Female

DRUGS (3)
  1. CERTICAN [Suspect]
     Dosage: 0.5 MG, BID
     Dates: start: 20101019, end: 20130211
  2. CERTICAN [Suspect]
     Dosage: 3 MG, DAILY
     Dates: start: 20130212
  3. MYFORTIC [Suspect]
     Dosage: 360 MG, DAILY
     Dates: start: 200511

REACTIONS (2)
  - Pulmonary mass [Recovered/Resolved]
  - Tuberculosis [Unknown]
